FAERS Safety Report 8192590-0 (Version None)
Quarter: 2012Q1

REPORT INFORMATION
  Report Type: 
  Country: None (occurrence: None)
  Receive Date: 20120308
  Receipt Date: 20120229
  Transmission Date: 20120608
  Serious: Yes (Other)
  Sender: FDA-Public Use
  Company Number: GB-TEVA-325785ISR

PATIENT
  Age: 46 Year
  Sex: Male

DRUGS (3)
  1. CLOZARIL [Suspect]
     Indication: SCHIZOPHRENIA
     Dosage: 500 MILLIGRAM; 500 MG, DAILY
     Route: 048
     Dates: start: 19990728
  2. SERTRALINE HYDROCHLORIDE [Suspect]
     Indication: DEPRESSION
     Dosage: 150 MILLIGRAM; 150 MG, DAILY
     Route: 048
  3. AMISULPRIDE [Suspect]
     Dosage: 400 MILLIGRAM; 400 MG, DAIL
     Route: 048

REACTIONS (2)
  - HAEMOGLOBIN INCREASED [None]
  - PLATELET COUNT DECREASED [None]
